FAERS Safety Report 4383152-1 (Version None)
Quarter: 2004Q2

REPORT INFORMATION
  Report Type: 
  Country: None (occurrence: None)
  Receive Date: 20040618
  Receipt Date: 20040610
  Transmission Date: 20050107
  Serious: Yes (Death)
  Sender: FDA-Public Use
  Company Number: US-JNJFOC-20040205359

PATIENT
  Age: 41 Year
  Sex: Male

DRUGS (8)
  1. DURAGESIC [Suspect]
     Indication: PAIN
     Dosage: SEE IMAGE TRANSDERMAL
     Route: 062
     Dates: end: 20030301
  2. DURAGESIC [Suspect]
     Indication: PAIN
     Dosage: SEE IMAGE TRANSDERMAL
     Route: 062
     Dates: start: 20030301, end: 20040101
  3. DURAGESIC [Suspect]
     Indication: PAIN
     Dosage: SEE IMAGE TRANSDERMAL
     Route: 062
     Dates: start: 20010101
  4. DILAUDID [Concomitant]
  5. ATIVAN [Concomitant]
  6. ANTICONVULSANTS (ANTIEPILEPTICS) [Concomitant]
  7. DIABETIC MEDICATIONS [Concomitant]
  8. DILANTIN [Concomitant]

REACTIONS (6)
  - APPLICATION SITE REACTION [None]
  - DEPRESSED LEVEL OF CONSCIOUSNESS [None]
  - MEDICATION ERROR [None]
  - MYOCARDIAL INFARCTION [None]
  - PHARMACEUTICAL PRODUCT COMPLAINT [None]
  - SOMNOLENCE [None]
